FAERS Safety Report 24453393 (Version 2)
Quarter: 2024Q4

REPORT INFORMATION
  Report Type: Report from Study
  Country: US (occurrence: US)
  Receive Date: 20241017
  Receipt Date: 20241018
  Transmission Date: 20250114
  Serious: No
  Sender: ROCHE
  Company Number: US-ROCHE-3176995

PATIENT
  Age: 79 Year
  Sex: Male

DRUGS (9)
  1. RITUXAN [Suspect]
     Active Substance: RITUXIMAB
     Indication: Immune thrombocytopenia
     Dosage: DATE OF SERVICE WAS ON 09/SEP/2022
     Route: 041
  2. LIPITOR [Concomitant]
     Active Substance: ATORVASTATIN CALCIUM
  3. COREG [Concomitant]
     Active Substance: CARVEDILOL
  4. DOXYLAMINE [Concomitant]
     Active Substance: DOXYLAMINE
  5. DUPIXENT [Concomitant]
     Active Substance: DUPILUMAB
  6. PROMACTA [Concomitant]
     Active Substance: ELTROMBOPAG OLAMINE
  7. TRICOR [Concomitant]
     Active Substance: FENOFIBRATE
  8. VIAGRA [Concomitant]
     Active Substance: SILDENAFIL CITRATE
  9. LISINOPRIL [Concomitant]
     Active Substance: LISINOPRIL

REACTIONS (2)
  - Off label use [Unknown]
  - No adverse event [Unknown]
